FAERS Safety Report 4938852-9 (Version None)
Quarter: 2006Q1

REPORT INFORMATION
  Report Type: 
  Country: None (occurrence: None)
  Receive Date: 20060309
  Receipt Date: 20050927
  Transmission Date: 20060701
  Serious: Yes (Hospitalization, Other)
  Sender: FDA-Public Use
  Company Number: US-MERCK-0509USA04702

PATIENT
  Age: 75 Year
  Sex: Male
  Weight: 71 kg

DRUGS (4)
  1. VIOXX [Suspect]
     Indication: BACK PAIN
     Route: 048
     Dates: start: 20030101, end: 20040101
  2. VIOXX [Suspect]
     Indication: BACK DISORDER
     Route: 048
     Dates: start: 20030101, end: 20040101
  3. ASPIRIN [Concomitant]
     Route: 065
  4. DEPAKOTE [Concomitant]
     Route: 065

REACTIONS (13)
  - ATRIAL FIBRILLATION [None]
  - CEREBROVASCULAR ACCIDENT [None]
  - CHRONIC OBSTRUCTIVE PULMONARY DISEASE [None]
  - DEMENTIA ALZHEIMER'S TYPE [None]
  - DEPRESSION [None]
  - DRUG TOXICITY [None]
  - HEADACHE [None]
  - ISCHAEMIA [None]
  - MYOCARDIAL INFARCTION [None]
  - PERIRECTAL ABSCESS [None]
  - PNEUMONIA [None]
  - PULMONARY FIBROSIS [None]
  - THROMBOCYTOPENIA [None]
